FAERS Safety Report 18693808 (Version 1)
Quarter: 2021Q1

REPORT INFORMATION
  Report Type: Spontaneous
  Country: CN (occurrence: CN)
  Receive Date: 20210104
  Receipt Date: 20210104
  Transmission Date: 20210419
  Serious: Yes (Other)
  Sender: FDA-Public Use
  Company Number: CN-LUPIN PHARMACEUTICALS INC.-2020-11195

PATIENT
  Age: 53 Year
  Sex: Female

DRUGS (18)
  1. OXYCODONE AND ACETAMINOPHEN [Suspect]
     Active Substance: ACETAMINOPHEN\OXYCODONE HYDROCHLORIDE
     Indication: CANCER PAIN
     Dosage: UNK
     Route: 065
  2. DEXAMETHASONE. [Concomitant]
     Active Substance: DEXAMETHASONE
     Indication: CANCER PAIN
     Dosage: 5 MILLIGRAM (AT AN INFUSION RATE OF 0.5 ML/H)
     Route: 037
     Dates: start: 20191213
  3. NIVOLUMAB [Concomitant]
     Active Substance: NIVOLUMAB
     Indication: LUNG CANCER METASTATIC
     Dosage: 140 MILLIGRAM, UNK
     Route: 065
  4. MORPHINE [Suspect]
     Active Substance: MORPHINE
     Indication: CANCER PAIN
     Dosage: 20 MILLIGRAM (AT AN INFUSION RATE OF 0.5 ML/H)
     Route: 037
     Dates: start: 20191213
  5. OXYCODONE HYDROCHLORIDE. [Suspect]
     Active Substance: OXYCODONE HYDROCHLORIDE
     Dosage: 120 MILLIGRAM, BID (GRADUALLY DOSE INCREASED)
     Route: 065
  6. FLUVOXAMINE MALEATE. [Concomitant]
     Active Substance: FLUVOXAMINE MALEATE
     Indication: DEPRESSION
     Dosage: 100 MILLIGRAM, QD (EVERY NIGHT)
     Route: 065
     Dates: start: 2019
  7. MORPHINE [Suspect]
     Active Substance: MORPHINE
     Dosage: UNK (INCREASED BY ADDITIONAL 10 MG TO THE PUMP MIXTURE; AND INFUSION SPEED WAS INCREASED TO 1 ML/H)
     Route: 037
     Dates: start: 20191214
  8. MORPHINE [Suspect]
     Active Substance: MORPHINE
     Dosage: UNK (INCREASED AGAIN TO 50 MG AND THE PUMP RATE WAS LOWERED TO 0.5 ML/H)
     Route: 037
     Dates: start: 20191215
  9. OXYCODONE HYDROCHLORIDE. [Suspect]
     Active Substance: OXYCODONE HYDROCHLORIDE
     Indication: CANCER PAIN
     Dosage: UNK (INITIAL DOSAGE NOT STATED)
     Route: 065
  10. HYDROMORPHONE [Suspect]
     Active Substance: HYDROMORPHONE
     Indication: CANCER PAIN
     Dosage: 0.5 MILLIGRAM (A BOLUS OF 0.5 MG)
     Route: 042
     Dates: start: 20191211
  11. ROPIVACAINE. [Concomitant]
     Active Substance: ROPIVACAINE HYDROCHLORIDE
     Indication: CANCER PAIN
     Dosage: 0.1 MILLIGRAM (AT AN INFUSION RATE OF 0.5 ML/H)
     Route: 037
     Dates: start: 20191213
  12. MORPHINE [Suspect]
     Active Substance: MORPHINE
     Dosage: UNK (INTRATHECAL PUMP NOW CONTAINED MORPHINE 70 MG THE INFUSION RATE WAS SET AT 0.5 ML/H)
     Route: 037
     Dates: start: 201912
  13. HYDROMORPHONE [Suspect]
     Active Substance: HYDROMORPHONE
     Dosage: 0.2 MILLIGRAM (DOSE OF 0.2 MG/H)
     Route: 042
     Dates: start: 20191211
  14. HYDROCODONE HYDROCHLORIDE [Suspect]
     Active Substance: HYDROCODONE HYDROCHLORIDE
     Indication: CANCER PAIN
     Dosage: 10 MILLIGRAM, BID
     Route: 048
     Dates: start: 201812
  15. HYDROCODONE AND ACETAMINOPHEN [Suspect]
     Active Substance: ACETAMINOPHEN\HYDROCODONE
     Indication: CANCER PAIN
     Dosage: 5 MILLIGRAM, QID
     Route: 048
     Dates: start: 201812
  16. PREGABALIN. [Concomitant]
     Active Substance: PREGABALIN
     Indication: CANCER PAIN
     Dosage: 75 MILLIGRAM, BID
     Route: 065
     Dates: start: 201912
  17. VEBRELTINIB. [Concomitant]
     Active Substance: VEBRELTINIB
     Indication: LUNG CANCER METASTATIC
     Dosage: 200 MILLIGRAM, BID
     Route: 065
  18. MORPHINE [Suspect]
     Active Substance: MORPHINE
     Dosage: UNK (INCREASED TO 70MG TO THE PUMP MIXTURE; WITH THE PATIENT RECEIVING 0.35 MG/H)
     Route: 037
     Dates: start: 201912

REACTIONS (12)
  - Somnolence [Recovering/Resolving]
  - Pruritus [Recovering/Resolving]
  - Hypotension [Not Recovered/Not Resolved]
  - Respiratory depression [Not Recovered/Not Resolved]
  - Constipation [Not Recovered/Not Resolved]
  - Hallucination [Not Recovered/Not Resolved]
  - Nausea [Recovering/Resolving]
  - Urinary retention [Not Recovered/Not Resolved]
  - Dysuria [Not Recovered/Not Resolved]
  - Bradycardia [Not Recovered/Not Resolved]
  - Hypertension [Not Recovered/Not Resolved]
  - Vomiting [Recovering/Resolving]
